FAERS Safety Report 24337860 (Version 1)
Quarter: 2024Q3

REPORT INFORMATION
  Report Type: Spontaneous
  Country: TR (occurrence: TR)
  Receive Date: 20240919
  Receipt Date: 20240919
  Transmission Date: 20241016
  Serious: Yes (Life-Threatening, Other)
  Sender: AMGEN
  Company Number: TR-AMGEN-TURSP2024182913

PATIENT

DRUGS (5)
  1. PEGFILGRASTIM [Suspect]
     Active Substance: PEGFILGRASTIM
     Indication: Prophylaxis
     Dosage: UNK, Q3WK, EVERY 21 DAYS FOR 4-6 CYCLES
     Route: 065
  2. FILGRASTIM [Suspect]
     Active Substance: FILGRASTIM
     Indication: Prophylaxis
     Dosage: UNK UNK, Q3WK, EVERY 21 DAYS FOR 4-6 CYCLES
     Route: 065
  3. CARBOPLATIN [Concomitant]
     Active Substance: CARBOPLATIN
     Indication: Prophylaxis
     Dosage: UNK, Q3WK, 5 AUC, DAY 1, EVERY 21 DAYS FOR 4-6 CYCLES
  4. ETOPOSIDE [Concomitant]
     Active Substance: ETOPOSIDE
     Indication: Prophylaxis
     Dosage: 100 MILLIGRAM/SQ. METER, Q3WK, DAYS 1, 2, AND 3
  5. ATEZOLIZUMAB [Concomitant]
     Active Substance: ATEZOLIZUMAB
     Indication: Prophylaxis
     Dosage: 1200 MILLIGRAM, Q3WK, DAY 1, EVERY 21 DAYS FOR 4-6 CYCLES

REACTIONS (8)
  - Febrile neutropenia [Unknown]
  - Adverse event [Unknown]
  - Immune-mediated lung disease [Unknown]
  - Hepatotoxicity [Unknown]
  - Immune-mediated enterocolitis [Unknown]
  - Endocrine toxicity [Unknown]
  - Small cell lung cancer metastatic [Unknown]
  - Skin toxicity [Unknown]
